FAERS Safety Report 7289101-0 (Version None)
Quarter: 2011Q1

REPORT INFORMATION
  Report Type: 
  Country: None (occurrence: None)
  Receive Date: 20110211
  Receipt Date: 20110207
  Transmission Date: 20110831
  Serious: Yes (Life-Threatening)
  Sender: FDA-Public Use
  Company Number: FR-ASTRAZENECA-2011SE07132

PATIENT
  Sex: Male

DRUGS (4)
  1. DIPRIVAN [Suspect]
     Indication: INDUCTION OF ANAESTHESIA
     Dosage: ONCE/SINGLE ADMINISTRATION
     Route: 042
     Dates: start: 20101201, end: 20101201
  2. REMIFENTANYL BASE [Suspect]
     Indication: INDUCTION OF ANAESTHESIA
     Dosage: ONCE/SINGLE ADMINISTRATION
     Route: 042
     Dates: start: 20101201, end: 20101201
  3. AUGMENTIN '125' [Suspect]
     Indication: ANTIBIOTIC PROPHYLAXIS
     Route: 042
     Dates: start: 20101201, end: 20101201
  4. TRACRIUM [Suspect]
     Indication: INDUCTION OF ANAESTHESIA
     Dosage: ONCE/SINGLE ADMINISTRATION
     Route: 042
     Dates: start: 20101201, end: 20101201

REACTIONS (1)
  - ANAPHYLACTIC SHOCK [None]
